FAERS Safety Report 23985669 (Version 3)
Quarter: 2024Q4

REPORT INFORMATION
  Report Type: Report from Study
  Country: US (occurrence: US)
  Receive Date: 20240618
  Receipt Date: 20241009
  Transmission Date: 20250114
  Serious: Yes (Death, Hospitalization)
  Sender: TAIHO ONCOLOGY INC
  Company Number: US-OTSUKA-2024_016825

PATIENT
  Age: 73 Year
  Sex: Male
  Weight: 110 kg

DRUGS (5)
  1. INQOVI [Suspect]
     Active Substance: CEDAZURIDINE\DECITABINE
     Indication: Myelodysplastic syndrome
     Dosage: 1 DF (35 MG OF DECITABINE AND 100 MG OF CEDAZURIDINE), QD ON DAYS 1-5 EVERY 28 DAYS?DAILY DOSE: 1 DO
     Route: 048
     Dates: start: 202303
  2. INQOVI [Suspect]
     Active Substance: CEDAZURIDINE\DECITABINE
     Dosage: 1 DF (35 MG OF DECITABINE AND 100 MG OF CEDAZURIDINE), QD ON DAYS 1,3,5 OF 28 DAYS OF CYCLE)?DAILY D
     Route: 048
  3. INQOVI [Suspect]
     Active Substance: CEDAZURIDINE\DECITABINE
     Dosage: CURRENT CYCLE 5?1 DF (35 MG OF DECITABINE AND 100 MG OF CEDAZURIDINE), QD ON DAYS 1,3,5 OF 28 DAYS O
     Route: 048
     Dates: start: 202404
  4. ABIRATERONE [Concomitant]
     Active Substance: ABIRATERONE
     Indication: Product used for unknown indication
     Dosage: UNK
     Route: 065
  5. PREDNISONE [Concomitant]
     Active Substance: PREDNISONE
     Indication: Product used for unknown indication
     Dosage: UNK
     Route: 065

REACTIONS (6)
  - Death [Fatal]
  - Full blood count abnormal [Unknown]
  - Loss of consciousness [Unknown]
  - Urinary tract infection [Recovering/Resolving]
  - Pyrexia [Unknown]
  - Inappropriate schedule of product administration [Unknown]
